FAERS Safety Report 13459124 (Version 2)
Quarter: 2017Q3

REPORT INFORMATION
  Report Type: Spontaneous
  Country: US (occurrence: US)
  Receive Date: 20170419
  Receipt Date: 20170719
  Transmission Date: 20171127
  Serious: No
  Sender: FDA-Public Use
  Company Number: US-OTSUKA-2017_006807

PATIENT
  Age: 52 Year
  Sex: Female
  Weight: 86.17 kg

DRUGS (5)
  1. REXULTI [Suspect]
     Active Substance: BREXPIPRAZOLE
     Dosage: 0.5 UNK, UNK
     Route: 048
     Dates: start: 20170407
  2. REXULTI [Suspect]
     Active Substance: BREXPIPRAZOLE
     Indication: SCHIZOPHRENIA
     Dosage: 0.5 MG, UNK
     Route: 048
     Dates: start: 20170206, end: 20170207
  3. RAXIL [Concomitant]
     Indication: PRODUCT USED FOR UNKNOWN INDICATION
     Dosage: 40 MG, QD
     Route: 048
  4. KLONOPIN [Concomitant]
     Active Substance: CLONAZEPAM
     Indication: PRODUCT USED FOR UNKNOWN INDICATION
     Dosage: 2 MG, TID
     Route: 048
  5. TRAZODONE [Concomitant]
     Active Substance: TRAZODONE HYDROCHLORIDE
     Indication: PRODUCT USED FOR UNKNOWN INDICATION
     Dosage: 150 MG, UNK, QHS
     Route: 048

REACTIONS (5)
  - Screaming [Unknown]
  - Vomiting [Unknown]
  - Abdominal pain [Unknown]
  - Mood altered [Unknown]
  - Headache [Unknown]

NARRATIVE: CASE EVENT DATE: 20170207
